FAERS Safety Report 6335419-5 (Version None)
Quarter: 2009Q3

REPORT INFORMATION
  Report Type: 
  Country: None (occurrence: None)
  Receive Date: 20090831
  Receipt Date: 20090824
  Transmission Date: 20100115
  Serious: Yes (Other)
  Sender: FDA-Public Use
  Company Number: PHEH2009US02430

PATIENT
  Sex: Female

DRUGS (3)
  1. RECLAST [Suspect]
     Indication: OSTEOPOROSIS
     Dosage: 5 MG, UNK
     Dates: start: 20090129
  2. FENTANYL [Concomitant]
  3. LORTAB [Concomitant]
     Indication: PAIN
     Dosage: 7.5 UNK, PRN

REACTIONS (4)
  - ASTHENIA [None]
  - FATIGUE [None]
  - MYALGIA [None]
  - VITAMIN D DECREASED [None]
